FAERS Safety Report 8963993 (Version 1)
Quarter: 2012Q4

REPORT INFORMATION
  Report Type: 
  Country: BR (occurrence: BR)
  Receive Date: 20121214
  Receipt Date: 20121214
  Transmission Date: 20130627
  Serious: Yes (Other)
  Sender: FDA-Public Use
  Company Number: BR-AMGEN-BRASP2011055068

PATIENT
  Age: 38 Year
  Sex: Female
  Weight: 64 kg

DRUGS (4)
  1. ETANERCEPT [Suspect]
     Indication: PSORIASIS
     Dosage: 50 mg (one injection), weekly (on Tuesday)
  2. ETANERCEPT [Suspect]
     Indication: ARTHRITIS
     Dosage: 50 mg, qwk
     Route: 058
     Dates: end: 201205
  3. ETANERCEPT [Suspect]
     Indication: RHEUMATOID ARTHRITIS
     Dosage: UNK
  4. ETANERCEPT [Suspect]
     Indication: PRODUCT USED FOR UNKNOWN INDICATION
     Dosage: UNK

REACTIONS (12)
  - Urinary tract infection [Unknown]
  - Hepatic steatosis [Not Recovered/Not Resolved]
  - Dermatitis [Unknown]
  - Feeling cold [Unknown]
  - Skin infection [Unknown]
  - Endometriosis [Unknown]
  - Drug ineffective [Not Recovered/Not Resolved]
  - Injection site extravasation [Unknown]
  - Gastric disorder [Unknown]
  - Wound [Unknown]
  - Feeling abnormal [Unknown]
  - Psoriasis [Unknown]
